FAERS Safety Report 6095626-6 (Version None)
Quarter: 2009Q1

REPORT INFORMATION
  Report Type: 
  Country: None (occurrence: None)
  Receive Date: 20090227
  Receipt Date: 20080523
  Transmission Date: 20090719
  Serious: No
  Sender: FDA-Public Use
  Company Number: A0727237A

PATIENT
  Age: 38 Year
  Sex: Female
  Weight: 63.6 kg

DRUGS (2)
  1. LAMICTAL [Suspect]
     Indication: BIPOLAR DISORDER
     Dosage: 25MG PER DAY
     Route: 048
  2. CHLOROQUINE PHOSPHATE [Suspect]
     Indication: PROPHYLAXIS

REACTIONS (2)
  - BIPOLAR DISORDER [None]
  - RASH [None]
